FAERS Safety Report 6444908-4 (Version None)
Quarter: 2009Q4

REPORT INFORMATION
  Report Type: 
  Country: None (occurrence: None)
  Receive Date: 20091117
  Receipt Date: 20091117
  Transmission Date: 20100525
  Serious: No
  Sender: FDA-Public Use
  Company Number: None

PATIENT
  Age: 60 Year
  Sex: Male
  Weight: 61.6 kg

DRUGS (8)
  1. DIVALPROEX SODIUM [Suspect]
     Dosage: 1000MG BID
     Dates: start: 20090605, end: 20090923
  2. DIVALPROEX SODIUM [Suspect]
     Dosage: 1000MG BID
     Dates: start: 20090904, end: 20090923
  3. ASPIRIN [Concomitant]
  4. FLUPHENAZINE [Concomitant]
  5. LEVETIRACETAM [Concomitant]
  6. SIMVASTATIN [Concomitant]
  7. QUETIAPINE [Concomitant]
  8. LITHIUM CARBONATE [Concomitant]

REACTIONS (1)
  - NEUTROPHIL COUNT DECREASED [None]
